FAERS Safety Report 4957819-8 (Version None)
Quarter: 2006Q1

REPORT INFORMATION
  Report Type: 
  Country: None (occurrence: None)
  Receive Date: 20060330
  Receipt Date: 20060317
  Transmission Date: 20060701
  Serious: Yes (Hospitalization)
  Sender: FDA-Public Use
  Company Number: NL-SOLVAY-00206000914

PATIENT
  Age: 12041 Day
  Sex: Female

DRUGS (4)
  1. GONADORELIN INJ [Concomitant]
     Indication: IN VITRO FERTILISATION
     Dosage: DAILY DOSE:  UNKNOWN
     Route: 065
     Dates: start: 20010228, end: 20010327
  2. PROGESTAN [Suspect]
     Indication: LUTEAL PHASE DEFICIENCY
     Dosage: DAILY DOSE: 600 MILLIGRAM(S)
     Route: 067
  3. PUREGON [Suspect]
     Indication: IN VITRO FERTILISATION
     Dosage: DAILY DOSE: 150 INTERNATIONAL UNIT(S)
     Route: 058
     Dates: start: 20010317, end: 20010327
  4. PREGNYL [Suspect]
     Indication: OVULATION INDUCTION
     Dosage: DAILY DOSE: 10000 INTERNATIONAL UNIT(S)
     Route: 058

REACTIONS (1)
  - ECTOPIC PREGNANCY [None]
